FAERS Safety Report 4278138-1 (Version None)
Quarter: 2004Q1

REPORT INFORMATION
  Report Type: 
  Country: None (occurrence: None)
  Receive Date: 20040121
  Receipt Date: 20040102
  Transmission Date: 20041129
  Serious: Yes (Other)
  Sender: FDA-Public Use
  Company Number: A03200302135

PATIENT
  Age: 46 Year
  Sex: Female

DRUGS (3)
  1. AMBIEN [Suspect]
     Dates: start: 20030101
  2. TAMOXIFEN [Suspect]
     Indication: BREAST CANCER
     Dosage: 20 MG QAM ORAL
     Route: 048
     Dates: start: 20030101, end: 20030301
  3. FRUIT JUICE [Suspect]
     Dosage: ORAL
     Route: 048

REACTIONS (2)
  - DYSPNOEA [None]
  - OEDEMA MOUTH [None]
